FAERS Safety Report 7329713-9 (Version None)
Quarter: 2011Q1

REPORT INFORMATION
  Report Type: 
  Country: None (occurrence: None)
  Receive Date: 20110303
  Receipt Date: 20110224
  Transmission Date: 20110831
  Serious: Yes (Other)
  Sender: FDA-Public Use
  Company Number: TR-ROXANE LABORATORIES, INC.-2011-RO-00230RO

PATIENT
  Age: 64 Year
  Sex: Female

DRUGS (6)
  1. RISPERDONE [Suspect]
     Indication: MAJOR DEPRESSION
  2. OLANZAPINE [Suspect]
     Indication: DELUSIONAL DISORDER, JEALOUS TYPE
     Dosage: 15 MG
  3. SERTRALINE [Suspect]
     Indication: MAJOR DEPRESSION
  4. OLANZAPINE [Suspect]
     Indication: MAJOR DEPRESSION
  5. SERTRALINE [Suspect]
     Indication: DELUSIONAL DISORDER, JEALOUS TYPE
     Dosage: 50 MG
  6. RISPERDONE [Suspect]
     Indication: DELUSIONAL DISORDER, JEALOUS TYPE
     Dosage: 4 MG

REACTIONS (3)
  - WEIGHT INCREASED [None]
  - DRUG INEFFECTIVE [None]
  - EXTRAPYRAMIDAL DISORDER [None]
